FAERS Safety Report 4519117-6 (Version None)
Quarter: 2004Q4

REPORT INFORMATION
  Report Type: 
  Country: None (occurrence: None)
  Receive Date: 20041201
  Receipt Date: 20041124
  Transmission Date: 20050328
  Serious: Yes (Hospitalization)
  Sender: FDA-Public Use
  Company Number: 200413257GDS

PATIENT
  Age: 38 Year
  Sex: Female
  Weight: 64 kg

DRUGS (5)
  1. AVELOX [Suspect]
     Indication: PNEUMONIA
     Dosage: 400 MG , TOTAL DAILY, INTRAVENOUS
     Route: 042
     Dates: start: 20040916, end: 20040917
  2. AVELOX [Suspect]
     Indication: PNEUMONIA
     Dosage: 400 MG , TOTAL DAILY, ORAL
     Route: 048
     Dates: start: 20040918, end: 20040921
  3. DUOVENT [Concomitant]
  4. PULMICORT [Concomitant]
  5. PERFALGAN [Concomitant]

REACTIONS (2)
  - COLITIS [None]
  - GASTROENTERITIS [None]
